FAERS Safety Report 12330785 (Version 3)
Quarter: 2016Q2

REPORT INFORMATION
  Report Type: Spontaneous
  Country: EE (occurrence: EE)
  Receive Date: 20160504
  Receipt Date: 20160527
  Transmission Date: 20160815
  Serious: Yes (Other)
  Sender: FDA-Public Use
  Company Number: EE-ROCHE-1750856

PATIENT
  Age: 28 Year
  Sex: Female
  Weight: 56 kg

DRUGS (13)
  1. ROACTEMRA [Suspect]
     Active Substance: TOCILIZUMAB
     Route: 042
     Dates: start: 20160525, end: 20160525
  2. ERYTHROCYTES [Concomitant]
     Active Substance: HUMAN RED BLOOD CELL
     Dosage: 3 DOSAGES
     Route: 065
  3. TREXAN (ESTONIA) [Concomitant]
     Route: 048
     Dates: end: 201604
  4. TAZOCIN [Concomitant]
     Active Substance: PIPERACILLIN SODIUM\TAZOBACTAM SODIUM
     Route: 042
     Dates: start: 20160419, end: 20160424
  5. ROACTEMRA [Suspect]
     Active Substance: TOCILIZUMAB
     Dosage: 200 MG/100 ML
     Route: 042
     Dates: start: 20160426, end: 20160426
  6. OXYCODONE [Concomitant]
     Active Substance: OXYCODONE
     Indication: PAIN
     Route: 048
  7. LIDOCAINE. [Concomitant]
     Active Substance: LIDOCAINE
     Route: 058
  8. ROACTEMRA [Suspect]
     Active Substance: TOCILIZUMAB
     Dosage: 200 MG/100 ML
     Route: 042
     Dates: start: 20160329
  9. ROACTEMRA [Suspect]
     Active Substance: TOCILIZUMAB
     Indication: SCLERODERMA
     Route: 042
     Dates: start: 2016
  10. OMEPRAZOLE. [Concomitant]
     Active Substance: OMEPRAZOLE
     Dosage: AT 8 AM
     Route: 048
  11. IMMUNOGLOBULIN [Concomitant]
     Active Substance: HUMAN IMMUNOGLOBULIN G
     Route: 042
  12. TRAMADOL. [Concomitant]
     Active Substance: TRAMADOL
     Indication: PAIN
     Route: 048
  13. PREDNISOLON [Concomitant]
     Active Substance: PREDNISOLONE
     Route: 065

REACTIONS (4)
  - Off label use [Unknown]
  - Pyrexia [Recovered/Resolved]
  - Neutrophil count decreased [Recovered/Resolved]
  - Blood pressure increased [Unknown]

NARRATIVE: CASE EVENT DATE: 2016
